FAERS Safety Report 10605592 (Version 1)
Quarter: 2014Q4

REPORT INFORMATION
  Report Type: Report from Study
  Country: NL (occurrence: NL)
  Receive Date: 20141124
  Receipt Date: 20141124
  Transmission Date: 20150529
  Serious: Yes (Hospitalization)
  Sender: FDA-Public Use
  Company Number: NL-AMGEN-NLDSL2014089000

PATIENT
  Age: 61 Year
  Sex: Female

DRUGS (1)
  1. NEULASTA [Suspect]
     Active Substance: PEGFILGRASTIM
     Indication: PRODUCT USED FOR UNKNOWN INDICATION
     Dosage: 6 MG, Q2WK
     Route: 065

REACTIONS (7)
  - Malaise [Unknown]
  - Infection [Unknown]
  - Blood glucose abnormal [Unknown]
  - Musculoskeletal pain [Unknown]
  - Bone pain [Unknown]
  - Back pain [Unknown]
  - Neck pain [Unknown]
